FAERS Safety Report 7590440-4 (Version None)
Quarter: 2011Q3

REPORT INFORMATION
  Report Type: 
  Country: None (occurrence: None)
  Receive Date: 20110705
  Receipt Date: 20100110
  Transmission Date: 20111222
  Serious: Yes (Death, Hospitalization, Other)
  Sender: FDA-Public Use
  Company Number: US-BAYER-201010742NA

PATIENT
  Age: 35 Year
  Sex: Female
  Weight: 68.027 kg

DRUGS (26)
  1. MIDAZOLAM HCL [Concomitant]
     Dosage: 20 MG, UNK
     Dates: start: 20070122, end: 20070122
  2. PLAVIX [Concomitant]
     Dosage: UNK
     Route: 042
     Dates: start: 20030501, end: 20040101
  3. MICARDIS [Concomitant]
     Dosage: UNK
     Dates: start: 20030801, end: 20040101
  4. MANNITOL [Concomitant]
     Dosage: 25 G, UNK
     Dates: start: 20070122, end: 20070122
  5. RED BLOOD CELLS [Concomitant]
     Dosage: 1 U, UNK
     Route: 042
     Dates: start: 20070315
  6. TRASYLOL [Suspect]
     Indication: PRODUCT USED FOR UNKNOWN INDICATION
     Dosage: 100 ML, PUMP PRIME
     Route: 042
     Dates: start: 20070122, end: 20070122
  7. PANCURONIUM [Concomitant]
     Dosage: 20
     Dates: start: 20070122, end: 20070122
  8. EPINEPHRINE [Concomitant]
     Dosage: 0.02-0.03MG/KILOGRAM/MINUTE
     Route: 042
     Dates: start: 20070122, end: 20070122
  9. AMIODARONE HCL [Concomitant]
     Dosage: 33.3MG/MINUTE
     Route: 042
     Dates: start: 20070122, end: 20070122
  10. ALBUMIN (HUMAN) [Concomitant]
     Dosage: 100 ML, UNK
     Dates: start: 20070122, end: 20070122
  11. PLATELETS [Concomitant]
     Dosage: 20 U, UNK
     Route: 042
     Dates: start: 20070315
  12. LIDOCAINE [Concomitant]
     Dosage: 50
     Route: 042
  13. PHENYLEPHRINE HCL [Concomitant]
     Dosage: UNK
     Dates: start: 20070122, end: 20070122
  14. DOPAMINE HCL [Concomitant]
     Dosage: 2.5 MG/KILOGRAM/MINUTE
     Route: 042
     Dates: start: 20070122, end: 20070122
  15. PROTAMINE SULFATE [Concomitant]
     Dosage: 2.5MG/KG/MIN
     Route: 042
     Dates: start: 20070122, end: 20070122
  16. HEPARIN [Concomitant]
     Dosage: 10000 U, UNK
     Dates: start: 20070122, end: 20070122
  17. COREG [Concomitant]
     Dosage: UNK
     Dates: start: 20030501, end: 20040101
  18. ZETIA [Concomitant]
     Dosage: UNK
     Dates: start: 20030901, end: 20040101
  19. FENTANYL [Concomitant]
     Dosage: 1510CC
     Route: 042
     Dates: start: 20070122, end: 20070122
  20. TRASYLOL [Suspect]
     Indication: AORTIC VALVE REPLACEMENT
     Dosage: 200 ML, LOADING DOSE
     Route: 042
     Dates: start: 20070122, end: 20070122
  21. ACETYLSALICYLIC ACID SRT [Concomitant]
     Dosage: 325 MG, UNK
     Route: 048
  22. LISINOPRIL [Concomitant]
     Dosage: 10 MG, UNK
     Route: 048
  23. ROCURONIUM BROMIDE [Concomitant]
     Dosage: 50
     Route: 042
     Dates: start: 20070122, end: 20070122
  24. TRASYLOL [Suspect]
     Dosage: 40CC/HOUR
     Route: 042
     Dates: start: 20070122, end: 20070122
  25. ZOCOR [Concomitant]
     Dosage: UNK
     Dates: start: 20030501, end: 20040101
  26. HEPARIN [Concomitant]
     Dosage: 24000 U, UNK
     Dates: start: 20070122, end: 20070122

REACTIONS (15)
  - INJURY [None]
  - MYOCARDIAL INFARCTION [None]
  - ANHEDONIA [None]
  - MULTI-ORGAN FAILURE [None]
  - RENAL FAILURE [None]
  - DEPRESSION [None]
  - RENAL INJURY [None]
  - CEREBROVASCULAR ACCIDENT [None]
  - RENAL IMPAIRMENT [None]
  - PAIN [None]
  - ANXIETY [None]
  - FEAR [None]
  - STRESS [None]
  - DEATH [None]
  - UNEVALUABLE EVENT [None]
